FAERS Safety Report 7580068-4 (Version None)
Quarter: 2011Q2

REPORT INFORMATION
  Report Type: 
  Country: None (occurrence: None)
  Receive Date: 20110629
  Receipt Date: 20110621
  Transmission Date: 20111010
  Serious: Yes (Hospitalization)
  Sender: FDA-Public Use
  Company Number: US-NOVOPROD-330348

PATIENT
  Sex: Female

DRUGS (2)
  1. NOVOLOG [Suspect]
     Indication: DIABETES MELLITUS
     Dosage: SLIDING SCALE
     Route: 058
     Dates: start: 20101201, end: 20110501
  2. NOVOLIN 70/30 FLEXPEN [Suspect]
     Indication: DIABETES MELLITUS
     Dosage: 110 U, BID
     Route: 058
     Dates: end: 20101201

REACTIONS (7)
  - EPISTAXIS [None]
  - BLISTER [None]
  - FLUID RETENTION [None]
  - CEREBROVASCULAR ACCIDENT [None]
  - SKIN FRAGILITY [None]
  - PAIN [None]
  - EYE HAEMORRHAGE [None]
